FAERS Safety Report 8163578-0 (Version None)
Quarter: 2012Q1

REPORT INFORMATION
  Report Type: 
  Country: None (occurrence: None)
  Receive Date: 20120224
  Receipt Date: 20120217
  Transmission Date: 20120608
  Serious: Yes (Other)
  Sender: FDA-Public Use
  Company Number: US-BAYER-2012-016659

PATIENT
  Age: 65 Year
  Sex: Female
  Weight: 91 kg

DRUGS (5)
  1. ANTI-DIABETICS [Concomitant]
  2. METFORMIN HCL [Concomitant]
  3. COUMADIN [Concomitant]
  4. ANOTHER HEART MEDICATION [Concomitant]
  5. CITRACAL MAXIMUM [Suspect]
     Dosage: 1 DF, TID
     Route: 048

REACTIONS (2)
  - CONSTIPATION [None]
  - RECTAL HAEMORRHAGE [None]
